FAERS Safety Report 23091975 (Version 2)
Quarter: 2025Q1

REPORT INFORMATION
  Report Type: Spontaneous
  Country: BR (occurrence: BR)
  Receive Date: 20231021
  Receipt Date: 20250221
  Transmission Date: 20250408
  Serious: Yes (Hospitalization)
  Sender: CELLTRION
  Company Number: BR-CELLTRION INC.-2023BR020179

PATIENT

DRUGS (15)
  1. INFLIXIMAB [Suspect]
     Active Substance: INFLIXIMAB
     Indication: Crohn^s disease
     Route: 042
     Dates: start: 20220905
  2. INFLIXIMAB [Suspect]
     Active Substance: INFLIXIMAB
     Route: 042
  3. INFLIXIMAB [Suspect]
     Active Substance: INFLIXIMAB
     Route: 042
  4. PREDNISONE [Concomitant]
     Active Substance: PREDNISONE
     Indication: Crohn^s disease
     Route: 048
  5. SIMETHICONE (DIMETHICONE) [Concomitant]
     Active Substance: DIMETHICONE
     Indication: Flatulence
     Route: 048
  6. ALENDRONATE [Concomitant]
     Active Substance: ALENDRONATE SODIUM
     Indication: Osteoporosis
     Dosage: 1 PILL A WEEK (STARTING MORE THAN 1 YEAR AGO)
     Route: 048
  7. CALCIUM CARBONATE [Concomitant]
     Active Substance: CALCIUM CARBONATE
     Indication: Osteoporosis
     Route: 048
  8. VITAMIN D NOS [Concomitant]
     Active Substance: CHOLECALCIFEROL\ERGOCALCIFEROL
     Indication: Vitamin supplementation
     Dosage: 1 PILL A WEEK
     Route: 048
  9. LOPERAMIDE [Concomitant]
     Active Substance: LOPERAMIDE
     Indication: Diarrhoea
     Route: 048
  10. TROPINAL [BUTYLSCOPOLAMINE BROMIDE;HOMATROPINE METHYLBROMIDE;HYOSCYAMI [Concomitant]
     Indication: Product used for unknown indication
  11. TROPINAL [BUTYLSCOPOLAMINE BROMIDE;HOMATROPINE METHYLBROMIDE;HYOSCYAMI [Concomitant]
     Route: 048
  12. ZOLPIDEM [Concomitant]
     Active Substance: ZOLPIDEM TARTRATE
     Indication: Insomnia
     Route: 048
  13. IMIPRAMINE [Concomitant]
     Active Substance: IMIPRAMINE
     Indication: Affect lability
  14. TRAMADOL [Concomitant]
     Active Substance: TRAMADOL
     Indication: Back pain
  15. OMEPRAZOLE [Concomitant]
     Active Substance: OMEPRAZOLE

REACTIONS (5)
  - Spinal deformity [Unknown]
  - Osteoporosis [Unknown]
  - Product dose omission in error [Unknown]
  - Intentional product use issue [Unknown]
  - Intentional product use issue [Unknown]
